FAERS Safety Report 6698048-X (Version None)
Quarter: 2010Q2

REPORT INFORMATION
  Report Type: 
  Country: None (occurrence: None)
  Receive Date: 20100427
  Receipt Date: 20100412
  Transmission Date: 20101027
  Serious: Yes (Life-Threatening)
  Sender: FDA-Public Use
  Company Number: US-BRACCO-004119

PATIENT
  Age: 58 Year
  Sex: Male

DRUGS (2)
  1. MULTIHANCE [Suspect]
     Indication: LIVER SCAN
     Route: 042
     Dates: start: 20080104, end: 20080104
  2. MULTIHANCE [Suspect]
     Indication: TRANSPLANT EVALUATION
     Route: 042
     Dates: start: 20080104, end: 20080104

REACTIONS (5)
  - APNOEA [None]
  - DISCOMFORT [None]
  - DISORIENTATION [None]
  - DYSPNOEA [None]
  - PULSE ABSENT [None]
